FAERS Safety Report 8004940-6 (Version None)
Quarter: 2011Q4

REPORT INFORMATION
  Report Type: 
  Country: None (occurrence: None)
  Receive Date: 20111223
  Receipt Date: 20111216
  Transmission Date: 20120403
  Serious: Yes (Other)
  Sender: FDA-Public Use
  Company Number: US-CUBIST-2011S1000931

PATIENT

DRUGS (3)
  1. CIPROFLOXACIN [Suspect]
     Indication: OSTEOMYELITIS
     Dosage: DOSE UNIT:U UNKNOWN
     Route: 065
  2. CUBICIN [Suspect]
     Indication: OSTEOMYELITIS
     Dosage: DOSE UNIT:U UNKNOWN
     Route: 065
  3. VANCOMYCIN HYCHLORIDE [Suspect]
     Indication: OSTEOMYELITIS
     Dosage: DOSE UNIT:U UNKNOWN
     Route: 065

REACTIONS (2)
  - OSTEOMYELITIS [None]
  - TREATMENT FAILURE [None]
